FAERS Safety Report 19688946 (Version 1)
Quarter: 2021Q3

REPORT INFORMATION
  Report Type: Spontaneous
  Country: US (occurrence: US)
  Receive Date: 20210811
  Receipt Date: 20210811
  Transmission Date: 20211014
  Serious: No
  Sender: FDA-Public Use
  Company Number: US-SA-2021SA259402

PATIENT
  Sex: Female

DRUGS (16)
  1. RANITIDINE HCL [Concomitant]
     Active Substance: RANITIDINE HYDROCHLORIDE
  2. ZYPREXA [Concomitant]
     Active Substance: OLANZAPINE
  3. LYRICA [Concomitant]
     Active Substance: PREGABALIN
  4. BUPROPION HCL [Concomitant]
     Active Substance: BUPROPION HYDROCHLORIDE
  5. AMITRIPTYLIN [Concomitant]
     Active Substance: AMITRIPTYLINE
  6. CLONIDINE HCL [Concomitant]
     Active Substance: CLONIDINE HYDROCHLORIDE
  7. FLUTICASONE PROPIONATE. [Concomitant]
     Active Substance: FLUTICASONE PROPIONATE
  8. PAROXETINE HCL [Concomitant]
     Active Substance: PAROXETINE HYDROCHLORIDE
  9. CYCLOBENZAPRINE. [Concomitant]
     Active Substance: CYCLOBENZAPRINE
  10. TRAZODONE HYDROCHLORIDE. [Concomitant]
     Active Substance: TRAZODONE HYDROCHLORIDE
  11. AMANTADINE. [Concomitant]
     Active Substance: AMANTADINE HYDROCHLORIDE
  12. CLONAZEPAM. [Concomitant]
     Active Substance: CLONAZEPAM
  13. AMOXICILLIN;CLAVULANATE POTASSIUM [Concomitant]
     Active Substance: AMOXICILLIN\CLAVULANATE POTASSIUM
  14. AZITHROMYCIN ANHYDROUS. [Concomitant]
     Active Substance: AZITHROMYCIN ANHYDROUS
  15. AUBAGIO [Suspect]
     Active Substance: TERIFLUNOMIDE
     Indication: MULTIPLE SCLEROSIS
     Dosage: 14 MG, QD
     Route: 048
  16. LEVOTHYROXIN [Concomitant]
     Active Substance: LEVOTHYROXINE

REACTIONS (1)
  - Diarrhoea [Not Recovered/Not Resolved]
